FAERS Safety Report 16257778 (Version 1)
Quarter: 2019Q2

REPORT INFORMATION
  Report Type: Spontaneous
  Country: US (occurrence: US)
  Receive Date: 20190430
  Receipt Date: 20190430
  Transmission Date: 20190711
  Serious: Yes (Other)
  Sender: FDA-Public Use
  Company Number: US-INTERCEPT-PM2019000665

PATIENT
  Sex: Female

DRUGS (1)
  1. OCALIVA [Suspect]
     Active Substance: OBETICHOLIC ACID
     Indication: PRIMARY BILIARY CHOLANGITIS
     Dosage: 5 MG, QD
     Route: 048
     Dates: end: 20190418

REACTIONS (4)
  - Drug ineffective [Unknown]
  - Pruritus [Not Recovered/Not Resolved]
  - Eosinophilia [Not Recovered/Not Resolved]
  - Pleural effusion [Not Recovered/Not Resolved]
